FAERS Safety Report 6638856-4 (Version None)
Quarter: 2010Q1

REPORT INFORMATION
  Report Type: 
  Country: None (occurrence: None)
  Receive Date: 20100316
  Receipt Date: 20100316
  Transmission Date: 20100710
  Serious: Yes (Life-Threatening, Other)
  Sender: FDA-Public Use
  Company Number: None

PATIENT
  Age: 34 Year
  Sex: Female
  Weight: 117.9352 kg

DRUGS (2)
  1. ZYPREXA [Suspect]
     Indication: ANGER
     Dosage: 2.5 DAY PO
     Route: 048
     Dates: start: 20100308, end: 20100315
  2. ZYPREXA [Suspect]
     Indication: ANXIETY
     Dosage: 2.5 DAY PO
     Route: 048
     Dates: start: 20100308, end: 20100315

REACTIONS (10)
  - BLOOD PRESSURE INCREASED [None]
  - CONSTIPATION [None]
  - COORDINATION ABNORMAL [None]
  - DROOLING [None]
  - LETHARGY [None]
  - MUSCLE TIGHTNESS [None]
  - PHOTOPHOBIA [None]
  - SEDATION [None]
  - THIRST [None]
  - THOUGHT BLOCKING [None]
